FAERS Safety Report 5760276-5 (Version None)
Quarter: 2008Q2

REPORT INFORMATION
  Report Type: 
  Country: None (occurrence: None)
  Receive Date: 20080605
  Receipt Date: 20080526
  Transmission Date: 20081010
  Serious: Yes (Hospitalization)
  Sender: FDA-Public Use
  Company Number: DE-PFIZER INC-2008045168

PATIENT
  Sex: Female

DRUGS (2)
  1. COMBACTAM [Suspect]
     Indication: INFECTION
     Dosage: TEXT:1X1G
     Route: 042
     Dates: start: 20080506, end: 20080512
  2. PIPERACILLIN [Suspect]
     Indication: INFECTION
     Dosage: TEXT:1X4G
     Route: 042
     Dates: start: 20080506, end: 20080512

REACTIONS (2)
  - RENAL FAILURE [None]
  - SEPSIS [None]
